FAERS Safety Report 7623395-4 (Version None)
Quarter: 2011Q3

REPORT INFORMATION
  Report Type: 
  Country: None (occurrence: None)
  Receive Date: 20110720
  Receipt Date: 20110715
  Transmission Date: 20111222
  Serious: Yes (Hospitalization)
  Sender: FDA-Public Use
  Company Number: CO-ROCHE-790059

PATIENT
  Sex: Male

DRUGS (2)
  1. PREDNISOLONE [Concomitant]
     Indication: ANTIINFLAMMATORY THERAPY
     Route: 048
  2. MIRCERA [Suspect]
     Route: 058
     Dates: start: 20110404

REACTIONS (1)
  - INFECTIOUS PERITONITIS [None]
